FAERS Safety Report 4288396-5 (Version None)
Quarter: 2004Q1

REPORT INFORMATION
  Report Type: 
  Country: None (occurrence: None)
  Receive Date: 20040209
  Receipt Date: 20030925
  Transmission Date: 20041129
  Serious: No
  Sender: FDA-Public Use
  Company Number: US-GLAXOSMITHKLINE-A0427534A

PATIENT
  Age: 39 Year
  Sex: Male

DRUGS (2)
  1. PAXIL [Suspect]
     Indication: PANIC DISORDER
     Dosage: 10MG PER DAY
     Route: 048
     Dates: start: 20030201, end: 20030602
  2. CHLORTHALIDONE [Concomitant]

REACTIONS (10)
  - ABNORMAL SENSATION IN EYE [None]
  - DIZZINESS [None]
  - EJACULATION DELAYED [None]
  - EYE PRURITUS [None]
  - HEADACHE [None]
  - IRRITABILITY [None]
  - KERATOCONJUNCTIVITIS SICCA [None]
  - PARAESTHESIA [None]
  - SOMNOLENCE [None]
  - WEIGHT DECREASED [None]
